FAERS Safety Report 11090811 (Version 1)
Quarter: 2015Q2

REPORT INFORMATION
  Report Type: Report from Study
  Country: US (occurrence: US)
  Receive Date: 20150505
  Receipt Date: 20150505
  Transmission Date: 20150821
  Serious: Yes (Death)
  Sender: FDA-Public Use
  Company Number: US-AMGEN-2014-0236

PATIENT
  Age: 63 Year
  Sex: Male
  Weight: 95.26 kg

DRUGS (21)
  1. CARFILZOMIB [Suspect]
     Active Substance: CARFILZOMIB
     Indication: PLASMA CELL MYELOMA
     Dosage: FREQ. TEXT: DAY 1, 2
     Route: 042
     Dates: start: 20131125
  2. CURCUMIN [Concomitant]
     Active Substance: CURCUMIN
     Indication: PROPHYLAXIS
     Route: 048
     Dates: end: 20140130
  3. TRANSDERM-SC DIS [Concomitant]
     Indication: NAUSEA
     Route: 062
     Dates: start: 20140108, end: 20140130
  4. TRIAMTEME/HYDROCHLOROTHIAZIDE [Concomitant]
     Indication: HYPERTENSION
     Route: 048
     Dates: end: 20140130
  5. NEXIUM [Concomitant]
     Active Substance: ESOMEPRAZOLE MAGNESIUM
     Indication: GASTROOESOPHAGEAL REFLUX DISEASE
     Route: 048
     Dates: end: 20140130
  6. ZOMETA [Concomitant]
     Active Substance: ZOLEDRONIC ACID
     Indication: PROPHYLAXIS
     Route: 042
     Dates: start: 20110127, end: 20140130
  7. CALCIUM [Concomitant]
     Active Substance: CALCIUM
     Indication: MINERAL SUPPLEMENTATION
     Route: 048
     Dates: end: 20140130
  8. DEXAMETHASONE. [Suspect]
     Active Substance: DEXAMETHASONE
     Indication: PLASMA CELL MYELOMA
     Dosage: FREQUENCY: 4 EVERY 28 DAYS; FREQ. TEXT: DAYS 1, 8, 15, 22 EVERY 28 DAYS
     Route: 042
     Dates: start: 20131125, end: 20140127
  9. ADDERALL [Concomitant]
     Active Substance: AMPHETAMINE ASPARTATE\AMPHETAMINE SULFATE\DEXTROAMPHETAMINE SACCHARATE\DEXTROAMPHETAMINE SULFATE
     Indication: ATTENTION DEFICIT/HYPERACTIVITY DISORDER
     Route: 048
     Dates: end: 20140130
  10. POTASSIUM SUPPLEMENT [Concomitant]
     Indication: BLOOD POTASSIUM DECREASED
     Route: 048
     Dates: start: 20131125, end: 20140130
  11. ALPHA LIPOIC ACID [Concomitant]
     Active Substance: .ALPHA.-LIPOIC ACID
     Indication: NEUROPATHY PERIPHERAL
     Route: 048
     Dates: start: 20110127, end: 20140130
  12. CYCLOPHOSPHAMIDE. [Suspect]
     Active Substance: CYCLOPHOSPHAMIDE
     Indication: PLASMA CELL MYELOMA
     Dosage: FREQUENCY: 3 EVERY 28 DAYS; FREQ. TEXT: DAYS 1, 8, 15 EVERY 28 DAYS
     Route: 048
     Dates: start: 20131125, end: 20140127
  13. VITAMIN D [Concomitant]
     Active Substance: CHOLECALCIFEROL
     Indication: HYPOVITAMINOSIS
     Route: 048
     Dates: end: 20140130
  14. ACYCLOVIR. [Concomitant]
     Active Substance: ACYCLOVIR
     Indication: ANTIVIRAL PROPHYLAXIS
     Route: 048
     Dates: start: 20131111, end: 20140130
  15. CARFILZOMIB [Suspect]
     Active Substance: CARFILZOMIB
     Dosage: FREQUENCY: 4 EVERY 21 DAYS; FREQ. TEXT: DAYS 8, 9, 15, 16
     Route: 042
     Dates: start: 20131202, end: 20131210
  16. AMLODIPINE [Concomitant]
     Active Substance: AMLODIPINE BESYLATE
     Indication: HYPERTENSION
     Route: 048
     Dates: end: 20140130
  17. CIALIS [Concomitant]
     Active Substance: TADALAFIL
     Indication: PRODUCT USED FOR UNKNOWN INDICATION
     Route: 048
     Dates: start: 20120319, end: 20140130
  18. OMEGA 3 FISH OIL [Concomitant]
     Active Substance: FISH OIL\OMEGA-3 FATTY ACIDS
     Indication: PROPHYLAXIS
     Route: 048
  19. IRON [Concomitant]
     Active Substance: IRON
     Indication: IRON DEFICIENCY
     Route: 042
     Dates: end: 20140130
  20. CARFILZOMIB [Suspect]
     Active Substance: CARFILZOMIB
     Dosage: FREQUENCY: 6 EVERY 28 DAYS; FREQ. TEXT: DAYS 1, 2 8, 9, 15, 16EVERY 28 DAYS
     Route: 042
     Dates: start: 20131223, end: 20140128
  21. COQ10 [Concomitant]
     Active Substance: UBIDECARENONE
     Indication: PROPHYLAXIS
     Route: 048
     Dates: end: 20140130

REACTIONS (1)
  - Coronary artery occlusion [Fatal]

NARRATIVE: CASE EVENT DATE: 20140130
